FAERS Safety Report 7300819-3 (Version None)
Quarter: 2011Q1

REPORT INFORMATION
  Report Type: 
  Country: None (occurrence: None)
  Receive Date: 20110218
  Receipt Date: 20110217
  Transmission Date: 20110831
  Serious: Yes (Death)
  Sender: FDA-Public Use
  Company Number: US-ROXANE LABORATORIES, INC.-2011-RO-00193RO

PATIENT
  Age: 11 Year
  Sex: Male

DRUGS (2)
  1. MORPHINE [Suspect]
     Indication: ABDOMINAL PAIN UPPER
  2. FENTANYL [Suspect]
     Indication: ABDOMINAL PAIN UPPER

REACTIONS (1)
  - DEATH [None]
